FAERS Safety Report 4330870-7 (Version None)
Quarter: 2004Q1

REPORT INFORMATION
  Report Type: 
  Country: None (occurrence: None)
  Receive Date: 20040331
  Receipt Date: 20040315
  Transmission Date: 20041129
  Serious: Yes (Hospitalization, Other)
  Sender: FDA-Public Use
  Company Number: USA040362081

PATIENT
  Age: 82 Year
  Sex: Female

DRUGS (1)
  1. FORTEO [Suspect]
     Dosage: 20 UG DAY
     Dates: start: 20030801

REACTIONS (4)
  - ARTHRITIS [None]
  - FALL [None]
  - PAIN IN EXTREMITY [None]
  - UPPER LIMB FRACTURE [None]
